FAERS Safety Report 9691145 (Version 2)
Quarter: 2014Q1

REPORT INFORMATION
  Report Type: Spontaneous
  Country: GB (occurrence: GB)
  Receive Date: 20131115
  Receipt Date: 20140319
  Transmission Date: 20141002
  Serious: Yes (Other)
  Sender: FDA-Public Use
  Company Number: GB-GLAXOSMITHKLINE-B0940624A

PATIENT
  Age: 76 Year
  Sex: Female

DRUGS (3)
  1. CEFUROXIME [Suspect]
     Indication: PROPHYLAXIS
     Route: 047
     Dates: start: 20131001, end: 20131027
  2. ATENOLOL [Concomitant]
  3. ALENDRONIC ACID [Concomitant]

REACTIONS (3)
  - Uveitis [Recovered/Resolved]
  - Eye inflammation [Recovered/Resolved]
  - Corneal deposits [Recovered/Resolved]
